FAERS Safety Report 15434158 (Version 1)
Quarter: 2018Q3

REPORT INFORMATION
  Report Type: Spontaneous
  Country: TR (occurrence: TR)
  Receive Date: 20180927
  Receipt Date: 20180927
  Transmission Date: 20181010
  Serious: Yes (Death, Hospitalization)
  Sender: FDA-Public Use
  Company Number: PHHY2018TR103290

PATIENT
  Age: 49 Year
  Sex: Female

DRUGS (2)
  1. HYDROXYCHLOROQUINE [Suspect]
     Active Substance: HYDROXYCHLOROQUINE
     Indication: RHEUMATOID ARTHRITIS
     Dosage: 400 MG, QD
     Route: 065
  2. CERTOLIZUMAB PEGOL [Suspect]
     Active Substance: CERTOLIZUMAB PEGOL
     Indication: RHEUMATOID ARTHRITIS
     Route: 065

REACTIONS (8)
  - Histiocytosis haematophagic [Unknown]
  - Rash maculo-papular [Unknown]
  - Exfoliative rash [Unknown]
  - Skin necrosis [Unknown]
  - Respiratory failure [Fatal]
  - Arrhythmia [Fatal]
  - Multiple organ dysfunction syndrome [Fatal]
  - Generalised tonic-clonic seizure [Unknown]
